FAERS Safety Report 4759579-2 (Version None)
Quarter: 2005Q3

REPORT INFORMATION
  Report Type: 
  Country: None (occurrence: None)
  Receive Date: 20050901
  Receipt Date: 20050309
  Transmission Date: 20060218
  Serious: Yes (Hospitalization, Other)
  Sender: FDA-Public Use
  Company Number: US-MERCK-0503USA01946

PATIENT
  Age: 51 Year
  Sex: Female
  Weight: 78 kg

DRUGS (7)
  1. VIOXX [Suspect]
     Indication: ARTHRITIS
     Route: 048
     Dates: start: 20030501, end: 20040501
  2. VIOXX [Suspect]
     Route: 048
     Dates: start: 20000501, end: 20040501
  3. VIOXX [Suspect]
     Route: 048
     Dates: start: 20000501, end: 20040501
  4. ZOLOFT [Concomitant]
     Route: 065
  5. TOPROL-XL [Concomitant]
     Route: 065
  6. CELEBREX [Concomitant]
     Route: 065
  7. PREMARIN [Concomitant]
     Route: 065

REACTIONS (21)
  - ABDOMINAL DISTENSION [None]
  - ABDOMINAL PAIN [None]
  - ANEURYSM [None]
  - ATRIOVENTRICULAR BLOCK FIRST DEGREE [None]
  - BLOOD GLUCOSE INCREASED [None]
  - BLOOD POTASSIUM DECREASED [None]
  - BLOOD PRESSURE DECREASED [None]
  - BLOOD SODIUM DECREASED [None]
  - BLOOD UREA INCREASED [None]
  - CEREBRAL HAEMATOMA [None]
  - CEREBROVASCULAR ACCIDENT [None]
  - CHEST WALL PAIN [None]
  - COSTOCHONDRITIS [None]
  - DEEP VEIN THROMBOSIS [None]
  - DYSPEPSIA [None]
  - GASTROOESOPHAGEAL REFLUX DISEASE [None]
  - HAEMORRHAGIC STROKE [None]
  - OEDEMA PERIPHERAL [None]
  - PAIN IN EXTREMITY [None]
  - PULMONARY EMBOLISM [None]
  - SWELLING [None]
